FAERS Safety Report 8472349-7 (Version None)
Quarter: 2012Q2

REPORT INFORMATION
  Report Type: 
  Country: None (occurrence: None)
  Receive Date: 20120627
  Receipt Date: 20120619
  Transmission Date: 20120825
  Serious: Yes (Hospitalization)
  Sender: FDA-Public Use
  Company Number: US-ACTELION-A-US2012-62952

PATIENT

DRUGS (2)
  1. TRACLEER [Suspect]
     Indication: PULMONARY ARTERIAL HYPERTENSION
     Dosage: UNK
     Route: 048
     Dates: start: 20120127
  2. COUMADIN [Concomitant]

REACTIONS (9)
  - RENAL DISORDER [None]
  - PULMONARY OEDEMA [None]
  - OEDEMA [None]
  - VENTRICULAR TACHYCARDIA [None]
  - DYSPNOEA [None]
  - OXYGEN SATURATION DECREASED [None]
  - WEIGHT INCREASED [None]
  - FLUID RETENTION [None]
  - NO THERAPEUTIC RESPONSE [None]
